FAERS Safety Report 8971650 (Version 5)
Quarter: 2013Q1

REPORT INFORMATION
  Report Type: Spontaneous
  Country: GB (occurrence: GB)
  Receive Date: 20121211
  Receipt Date: 20130115
  Transmission Date: 20140127
  Serious: Yes (Hospitalization, Other)
  Sender: FDA-Public Use
  Company Number: GB-PFIZER INC-2012306233

PATIENT
  Age: 55 Year
  Sex: Female

DRUGS (5)
  1. SUTENT [Suspect]
     Indication: RENAL CANCER METASTATIC
     Dosage: 50 MG, 1X/DAY
     Route: 065
     Dates: start: 2010
  2. SUTENT [Suspect]
     Dosage: 37.5 MG, 1X/DAY
     Route: 065
  3. SUTENT [Suspect]
     Dosage: 25 MG, 1X/DAY
     Route: 065
  4. CO-CODAMOL [Suspect]
     Indication: ANALGESIC THERAPY
     Dosage: UNK
     Route: 065
  5. SOLPADEINE [Suspect]
     Indication: ANALGESIC THERAPY
     Dosage: UNK
     Route: 065

REACTIONS (18)
  - Deafness [Unknown]
  - Skin exfoliation [Unknown]
  - Weight increased [Unknown]
  - Epistaxis [Unknown]
  - Platelet count decreased [Unknown]
  - Oedema [Unknown]
  - Fluid retention [Unknown]
  - Constipation [Unknown]
  - Nausea [Unknown]
  - Rash [Unknown]
  - Somnolence [Unknown]
  - Fatigue [Unknown]
  - Diarrhoea [Unknown]
  - Asthenia [Unknown]
  - Hair colour changes [Unknown]
  - Blood sodium increased [Unknown]
  - Blood pressure increased [Unknown]
  - Electrolyte imbalance [Unknown]
